FAERS Safety Report 23192225 (Version 1)
Quarter: 2023Q4

REPORT INFORMATION
  Report Type: Spontaneous
  Country: DE (occurrence: DE)
  Receive Date: 20231116
  Receipt Date: 20231116
  Transmission Date: 20240110
  Serious: No
  Sender: FDA-Public Use
  Company Number: DE-SCALL-2023-012606

PATIENT
  Age: 86 Year
  Sex: Male

DRUGS (2)
  1. DUTASTERIDE [Suspect]
     Active Substance: DUTASTERIDE
     Indication: Benign prostatic hyperplasia
     Dosage: 0.5 MG, QD
     Route: 065
     Dates: start: 20060110
  2. UNSPECIFIED INGREDIENT [Concomitant]
     Active Substance: UNSPECIFIED INGREDIENT

REACTIONS (3)
  - Papulopustular rosacea [Unknown]
  - Disease progression [Unknown]
  - Drug intolerance [Unknown]

NARRATIVE: CASE EVENT DATE: 20190101
